FAERS Safety Report 4963916-3 (Version None)
Quarter: 2006Q1

REPORT INFORMATION
  Report Type: 
  Country: None (occurrence: None)
  Receive Date: 20060330
  Receipt Date: 20060320
  Transmission Date: 20060701
  Serious: Yes (Hospitalization)
  Sender: FDA-Public Use
  Company Number: 2006-01058

PATIENT
  Age: 32 Year
  Sex: Female

DRUGS (15)
  1. LIDOCAINE [Suspect]
     Indication: LOCAL ANAESTHESIA
     Dosage: 100 MG
  2. METOCLOPRAMIDE [Suspect]
     Indication: DIABETIC GASTROPARESIS
  3. DAPSONE [Suspect]
     Indication: ANTIBIOTIC PROPHYLAXIS
  4. CYCLOSPORINE [Concomitant]
  5. PREDNISONE 50MG TAB [Concomitant]
  6. ASPIRIN [Concomitant]
  7. ONDANSETRON [Concomitant]
  8. PAROXETINE (PAROXETINE) [Concomitant]
  9. AMITRIPTYLINE HCL [Concomitant]
  10. NORTRIPTYLINE (NORTRIPTYLINE) [Concomitant]
  11. GABAPENTIN [Concomitant]
  12. SIROLIMUS (SIROLIMUS) [Concomitant]
  13. CLOTRIMAZOLE [Concomitant]
  14. LANSOPRAZOLE [Concomitant]
  15. ALENDRONATE SODIUM [Concomitant]

REACTIONS (1)
  - METHAEMOGLOBINAEMIA [None]
